FAERS Safety Report 23030026 (Version 1)
Quarter: 2023Q4

REPORT INFORMATION
  Report Type: Report from Study
  Country: CA (occurrence: CA)
  Receive Date: 20231005
  Receipt Date: 20231005
  Transmission Date: 20240110
  Serious: Yes (Death, Other)
  Sender: FDA-Public Use
  Company Number: CA-TAKEDA-2021TUS007090

PATIENT
  Age: 43 Year
  Sex: Male
  Weight: 136 kg

DRUGS (10)
  1. HUMAN IMMUNOGLOBULIN G [Suspect]
     Active Substance: HUMAN IMMUNOGLOBULIN G
     Indication: Chronic inflammatory demyelinating polyradiculoneuropathy
     Dosage: 32 GRAM, 1/WEEK
     Route: 058
     Dates: start: 20210128
  2. HUMAN IMMUNOGLOBULIN G [Suspect]
     Active Substance: HUMAN IMMUNOGLOBULIN G
     Dosage: 32 GRAM, 1/WEEK
     Route: 050
  3. JARDIANCE [Concomitant]
     Active Substance: EMPAGLIFLOZIN
  4. DULOXETINE [Concomitant]
     Active Substance: DULOXETINE
  5. JANUMET [Concomitant]
     Active Substance: METFORMIN HYDROCHLORIDE\SITAGLIPTIN PHOSPHATE
  6. UNSPECIFIED INGREDIENT [Concomitant]
     Active Substance: UNSPECIFIED INGREDIENT
  7. GABAPENTIN [Concomitant]
     Active Substance: GABAPENTIN
  8. FUROSEMIDE [Concomitant]
     Active Substance: FUROSEMIDE
  9. RAMIPRIL [Concomitant]
     Active Substance: RAMIPRIL
  10. AMLODIPINE [Concomitant]
     Active Substance: AMLODIPINE BESYLATE
     Indication: Hypertension
     Dosage: 2.5 MILLIGRAM, QD
     Dates: start: 202102

REACTIONS (5)
  - Death [Fatal]
  - Product physical issue [Unknown]
  - Blood pressure increased [Not Recovered/Not Resolved]
  - Off label use [Unknown]
  - Product use complaint [Not Recovered/Not Resolved]

NARRATIVE: CASE EVENT DATE: 20210101
